FAERS Safety Report 7675219-7 (Version None)
Quarter: 2011Q3

REPORT INFORMATION
  Report Type: 
  Country: None (occurrence: None)
  Receive Date: 20110810
  Receipt Date: 20110810
  Transmission Date: 20111222
  Serious: Yes (Life-Threatening)
  Sender: FDA-Public Use
  Company Number: None

PATIENT
  Age: 83 Year
  Sex: Male
  Weight: 54.431 kg

DRUGS (2)
  1. DONEPEZIL HCL [Suspect]
     Indication: DEMENTIA ALZHEIMER'S TYPE
     Dosage: 5 MG
     Route: 048
     Dates: start: 20110301, end: 20110501
  2. DONEPEZIL HCL [Concomitant]
     Dosage: 10 MG
     Route: 048
     Dates: start: 20110501, end: 20110629

REACTIONS (6)
  - CONDITION AGGRAVATED [None]
  - GAIT DISTURBANCE [None]
  - DEMENTIA [None]
  - GENERAL PHYSICAL HEALTH DETERIORATION [None]
  - INCONTINENCE [None]
  - WEIGHT DECREASED [None]
